FAERS Safety Report 6545253-9 (Version None)
Quarter: 2010Q1

REPORT INFORMATION
  Report Type: 
  Country: None (occurrence: None)
  Receive Date: 20100121
  Receipt Date: 20091102
  Transmission Date: 20100710
  Serious: No
  Sender: FDA-Public Use
  Company Number: US-KINGPHARMUSA00001-K200901394

PATIENT
  Sex: Female

DRUGS (1)
  1. EPIPEN [Suspect]
     Indication: DYSPNOEA
     Dosage: 0.3 MG, SINGLE
     Route: 030
     Dates: start: 20091001, end: 20091001

REACTIONS (1)
  - DRUG INEFFECTIVE [None]
